FAERS Safety Report 10097960 (Version 1)
Quarter: 2014Q2

REPORT INFORMATION
  Report Type: Spontaneous
  Country: GB (occurrence: GB)
  Receive Date: 20140423
  Receipt Date: 20140423
  Transmission Date: 20141212
  Serious: Yes (Other)
  Sender: FDA-Public Use
  Company Number: GB-ACCORD-023269

PATIENT
  Age: 72 Year
  Sex: Male

DRUGS (6)
  1. DOCETAXEL [Suspect]
     Indication: PROSTATE CANCER
  2. SIMVASTATIN [Concomitant]
  3. FELODIPINE [Concomitant]
  4. EPROSARTAN/EPROSARTAN MESILATE [Concomitant]
  5. GOSERELIN/GOSERELIN ACETATE [Concomitant]
     Indication: PROSTATIC SPECIFIC ANTIGEN INCREASED
     Route: 030
  6. PREDNISOLONE [Concomitant]
     Indication: PROSTATIC SPECIFIC ANTIGEN INCREASED
     Route: 048

REACTIONS (3)
  - Fatigue [Recovered/Resolved]
  - Atrial fibrillation [Unknown]
  - Drug effect delayed [Unknown]
